FAERS Safety Report 20771016 (Version 1)
Quarter: 2022Q2

REPORT INFORMATION
  Report Type: Spontaneous
  Country: FR (occurrence: FR)
  Receive Date: 20220429
  Receipt Date: 20220429
  Transmission Date: 20220721
  Serious: Yes (Hospitalization)
  Sender: FDA-Public Use
  Company Number: None

PATIENT
  Age: 72 Year
  Sex: Male

DRUGS (5)
  1. GENTAMICIN [Suspect]
     Active Substance: GENTAMICIN
     Indication: Septic shock
     Route: 042
     Dates: start: 20220328, end: 20220328
  2. ERYTHROMYCIN [Suspect]
     Active Substance: ERYTHROMYCIN
     Indication: Septic shock
     Route: 042
     Dates: start: 20220404, end: 20220407
  3. LINEZOLID [Suspect]
     Active Substance: LINEZOLID
     Indication: Septic shock
     Route: 042
     Dates: start: 20220329, end: 20220330
  4. CEFEPIME [Suspect]
     Active Substance: CEFEPIME HYDROCHLORIDE
     Indication: Septic shock
     Route: 041
     Dates: start: 20220329, end: 20220330
  5. CEFOTAXIME [Suspect]
     Active Substance: CEFOTAXIME SODIUM
     Indication: Septic shock
     Route: 042
     Dates: start: 20220328, end: 20220329

REACTIONS (1)
  - Rash [Recovering/Resolving]

NARRATIVE: CASE EVENT DATE: 20220408
